FAERS Safety Report 12586701 (Version 1)
Quarter: 2016Q3

REPORT INFORMATION
  Report Type: Spontaneous
  Country: US (occurrence: US)
  Receive Date: 20160725
  Receipt Date: 20160725
  Transmission Date: 20161109
  Serious: Yes (Death)
  Sender: FDA-Public Use
  Company Number: US-PFIZER INC-2016340930

PATIENT
  Age: 52 Year
  Sex: Male

DRUGS (1)
  1. IBRANCE [Suspect]
     Active Substance: PALBOCICLIB
     Indication: BREAST CANCER
     Dosage: 75 MG, 1X/DAY
     Route: 048
     Dates: start: 20150807, end: 20160328

REACTIONS (3)
  - Product use issue [Unknown]
  - Disease progression [Fatal]
  - Breast cancer [Fatal]

NARRATIVE: CASE EVENT DATE: 20160328
